FAERS Safety Report 4753937-8 (Version None)
Quarter: 2005Q3

REPORT INFORMATION
  Report Type: 
  Country: None (occurrence: None)
  Receive Date: 20050826
  Receipt Date: 20050802
  Transmission Date: 20060218
  Serious: Yes (Hospitalization)
  Sender: FDA-Public Use
  Company Number: JP-ABBOTT-05P-087-0307665-00

PATIENT
  Sex: Male

DRUGS (4)
  1. KLARICID [Suspect]
     Indication: PHARYNGITIS
     Route: 048
     Dates: start: 20050729, end: 20050731
  2. LOXOPROFEN SODIUM [Concomitant]
     Indication: DRUG USE FOR UNKNOWN INDICATION
     Route: 048
     Dates: start: 20050729, end: 20050731
  3. CARBOCISTEINE LYSINE [Concomitant]
     Indication: DRUG USE FOR UNKNOWN INDICATION
     Route: 048
     Dates: start: 20050729, end: 20050731
  4. SERRAPEPTASE [Concomitant]
     Indication: DRUG USE FOR UNKNOWN INDICATION
     Route: 048
     Dates: start: 20050729, end: 20050731

REACTIONS (4)
  - MYALGIA [None]
  - OEDEMA PERIPHERAL [None]
  - PETECHIAE [None]
  - PURPURA [None]
